FAERS Safety Report 17867079 (Version 4)
Quarter: 2020Q3

REPORT INFORMATION
  Report Type: Spontaneous
  Country: US (occurrence: US)
  Receive Date: 20200605
  Receipt Date: 20200818
  Transmission Date: 20201103
  Serious: Yes (Other)
  Sender: FDA-Public Use
  Company Number: US-ALLERGAN-2018184US

PATIENT
  Sex: Male

DRUGS (11)
  1. LINZESS [Suspect]
     Active Substance: LINACLOTIDE
     Dosage: 145 ?G, BID
  2. LACTULOSE. [Concomitant]
     Active Substance: LACTULOSE
     Dosage: 10 GM/ 15 ML, 30 MILLILITERS PO MAXIMUM 40 GMS QD
     Route: 048
     Dates: start: 20200509, end: 20200509
  3. LACTULOSE. [Concomitant]
     Active Substance: LACTULOSE
     Indication: CONSTIPATION
     Dosage: 1 TIME DAILY OR 2 IF NEEDED
  4. GAS?X [Suspect]
     Active Substance: DIMETHICONE
     Indication: FLATULENCE
  5. PERI?COLACE [Concomitant]
     Active Substance: CASANTHRANOL\DOCUSATE SODIUM
     Indication: CONSTIPATION
  6. LINZESS [Suspect]
     Active Substance: LINACLOTIDE
     Indication: IRRITABLE BOWEL SYNDROME
     Dosage: 145 ?G, QD
     Route: 048
  7. LINZESS [Suspect]
     Active Substance: LINACLOTIDE
     Indication: IRRITABLE BOWEL SYNDROME
     Dosage: 72 ?G, QAM
     Route: 048
  8. FLOMAX [Concomitant]
     Active Substance: TAMSULOSIN HYDROCHLORIDE
     Indication: CONSTIPATION
  9. LINZESS [Suspect]
     Active Substance: LINACLOTIDE
     Dosage: 72 ?G, BID
     Route: 048
  10. MIRALAX [Concomitant]
     Active Substance: POLYETHYLENE GLYCOL 3350
     Indication: CONSTIPATION
  11. BISACODYL. [Concomitant]
     Active Substance: BISACODYL
     Dosage: 1 DF, QD

REACTIONS (8)
  - Weight decreased [Unknown]
  - Anal incontinence [Recovered/Resolved]
  - Diarrhoea [Recovered/Resolved]
  - Proctalgia [Unknown]
  - Constipation [Unknown]
  - Drug ineffective [Unknown]
  - Renal neoplasm [Unknown]
  - Off label use [Unknown]
